FAERS Safety Report 8382762-4 (Version None)
Quarter: 2012Q2

REPORT INFORMATION
  Report Type: 
  Country: None (occurrence: None)
  Receive Date: 20120524
  Receipt Date: 20120517
  Transmission Date: 20120825
  Serious: Yes (Other)
  Sender: FDA-Public Use
  Company Number: US-BAYER-201030290NA

PATIENT
  Sex: Male
  Weight: 74 kg

DRUGS (24)
  1. OMNISCAN [Suspect]
     Indication: NUCLEAR MAGNETIC RESONANCE IMAGING BRAIN
     Dosage: 20 ML (DAILY DOSE), ONCE, INTRAVENOUS
     Route: 042
     Dates: start: 20020812, end: 20020812
  2. ACCUPRIL [Concomitant]
     Dosage: 40 MG, QD
  3. PHENYTOIN SODIUM CAP [Concomitant]
     Dosage: 100 MG, UNK
  4. PHOSLO [Concomitant]
     Dosage: 667 MG, TID WITH MEALS
  5. COUMADIN [Concomitant]
     Dosage: 0.2 MG, QAM AND QPM
  6. SUCRALFATE [Concomitant]
     Dosage: 1 PILL BEFORE MEALS
  7. SENSIPAR [Concomitant]
     Dosage: 60 MG, QD
  8. MINOXIDIL [Concomitant]
     Dosage: 5 MG, BID
  9. NIFEDIPINE [Concomitant]
     Dosage: 60 MG, UNK
  10. CARVEDILOL [Concomitant]
     Dosage: 25 MG, BID
  11. LABETALOL HCL [Concomitant]
     Dosage: 200 MG, BID
  12. NIFEDIPINE [Concomitant]
  13. MAGNEVIST [Suspect]
     Indication: NUCLEAR MAGNETIC RESONANCE IMAGING
     Dosage: 20 ML, ONCE
     Route: 042
     Dates: start: 20030507, end: 20030507
  14. HYDRALAZINE HCL [Concomitant]
  15. EPOETIN NOS [Concomitant]
  16. DIVALPROEX SODIUM [Concomitant]
  17. HYOSCYAMINE [Concomitant]
     Dosage: 0.125 MG, Q4HR
  18. NORVASC [Concomitant]
     Dosage: 10 MG, QD
  19. LISINOPRIL [Concomitant]
     Dosage: 40 MG, BID
  20. MAGNEVIST [Suspect]
  21. NITROPRUSSIDE SODIUM [Concomitant]
  22. CLONIDINE [Concomitant]
     Dosage: 0.2 MG, UNK
  23. PROCARDIA XL [Concomitant]
     Dosage: 60 MG, QD
  24. DICYCLOMINE [Concomitant]
     Dosage: 20 MG, BID

REACTIONS (12)
  - PAIN IN EXTREMITY [None]
  - BONE PAIN [None]
  - HYPERKERATOSIS [None]
  - SKIN HYPERPIGMENTATION [None]
  - PAIN [None]
  - SKIN FIBROSIS [None]
  - DRY SKIN [None]
  - OEDEMA [None]
  - MUSCULOSKELETAL PAIN [None]
  - NEPHROGENIC SYSTEMIC FIBROSIS [None]
  - ARTHRALGIA [None]
  - HYPOAESTHESIA [None]
